FAERS Safety Report 19292114 (Version 1)
Quarter: 2021Q2

REPORT INFORMATION
  Report Type: Other
  Country: US (occurrence: US)
  Receive Date: 20210524
  Receipt Date: 20210524
  Transmission Date: 20210717
  Serious: Yes (Other)
  Sender: FDA-Public Use
  Company Number: US-ROCHE-2834931

PATIENT
  Age: 69 Year
  Sex: Female

DRUGS (1)
  1. ACTILYSE [Suspect]
     Active Substance: ALTEPLASE
     Indication: PULMONARY EMBOLISM
     Dosage: 4 MG OF INTRAPULMONARY ALTEPLASE BOLUS VIA CDT INFUSION CATHETER; EMERGENT ADMINISTRATION OF ADDITIO
     Route: 065

REACTIONS (3)
  - Haemodynamic instability [Recovering/Resolving]
  - Thrombosis [Unknown]
  - Syncope [Recovering/Resolving]
